FAERS Safety Report 12853531 (Version 1)
Quarter: 2016Q4

REPORT INFORMATION
  Report Type: Spontaneous
  Country: US (occurrence: US)
  Receive Date: 20161017
  Receipt Date: 20161017
  Transmission Date: 20170207
  Serious: No
  Sender: FDA-Public Use
  Company Number: US-WEST-WARD PHARMACEUTICALS CORP.-US-H14001-16-00327

PATIENT
  Age: 89 Year
  Sex: Female

DRUGS (3)
  1. DURAMORPH [Suspect]
     Active Substance: MORPHINE SULFATE
     Indication: SPINAL PAIN
     Route: 037
     Dates: start: 20140204
  2. DURAMORPH [Suspect]
     Active Substance: MORPHINE SULFATE
     Route: 037
     Dates: end: 20160215
  3. DURAMORPH [Suspect]
     Active Substance: MORPHINE SULFATE
     Route: 037

REACTIONS (1)
  - Pain [Recovering/Resolving]

NARRATIVE: CASE EVENT DATE: 201508
